FAERS Safety Report 4897228-3 (Version None)
Quarter: 2006Q1

REPORT INFORMATION
  Report Type: 
  Country: None (occurrence: None)
  Receive Date: 20060127
  Receipt Date: 20060113
  Transmission Date: 20060701
  Serious: Yes (Death)
  Sender: FDA-Public Use
  Company Number: DSA_27602_2006

PATIENT
  Age: 22 Year
  Sex: Female

DRUGS (11)
  1. TEMESTA [Suspect]
     Dosage: 100 MG ONCE PO
     Route: 048
     Dates: start: 20051226, end: 20051226
  2. MEPRONIZINE [Suspect]
     Dosage: 4 TAB ONCE PO
     Route: 048
     Dates: start: 20051226, end: 20051226
  3. ALCOHOL [Suspect]
     Dosage: DF UNK PO
     Route: 048
     Dates: end: 20051226
  4. TEMESTA [Suspect]
     Dosage: 4 MG Q DAY PO
     Route: 048
     Dates: start: 20050912, end: 20051223
  5. TEMESTA [Suspect]
     Dosage: 1 MG UNK PO
     Route: 048
     Dates: start: 20051224, end: 20051201
  6. MEPRONIZINE [Suspect]
     Dosage: DF UNK PO
     Route: 048
  7. ABILIFY [Suspect]
     Dosage: 1 TAB Q DAY PO
     Route: 048
     Dates: start: 20050901, end: 20051201
  8. DEPAMIDE [Suspect]
     Dosage: 3 TAB Q DAY PO
     Route: 048
     Dates: start: 20050901, end: 20051201
  9. LEPTICUR [Suspect]
     Dosage: 20 MG Q DAY PO
     Route: 048
     Dates: start: 20050901, end: 20051201
  10. NOZINAN                 /NET/ [Suspect]
     Dosage: 200 MG Q DAY PO
     Route: 048
     Dates: start: 20050901, end: 20051201
  11. THERALENE [Suspect]
     Dosage: 30 GTT Q DAY PO
     Route: 048
     Dates: start: 20050901, end: 20051201

REACTIONS (2)
  - ALCOHOL USE [None]
  - MULTIPLE DRUG OVERDOSE [None]
